FAERS Safety Report 5575441-X (Version None)
Quarter: 2007Q4

REPORT INFORMATION
  Report Type: 
  Country: None (occurrence: None)
  Receive Date: 20071227
  Receipt Date: 20071221
  Transmission Date: 20080405
  Serious: Yes (Other)
  Sender: FDA-Public Use
  Company Number: PHNR2007AU02196

PATIENT

DRUGS (1)
  1. GLEEVEC [Suspect]

REACTIONS (3)
  - ANGIOEDEMA [None]
  - DISEASE PROGRESSION [None]
  - EOSINOPHILIA [None]
